FAERS Safety Report 8806367 (Version 1)
Quarter: 2012Q4

REPORT INFORMATION
  Report Type: 
  Country: DE (occurrence: DE)
  Receive Date: 20120925
  Receipt Date: 20120925
  Transmission Date: 20130627
  Serious: Yes (Hospitalization)
  Sender: FDA-Public Use
  Company Number: DE-BRISTOL-MYERS SQUIBB COMPANY-16974149

PATIENT

DRUGS (1)
  1. YERVOY [Suspect]
     Dosage: 2nd or 3rd cycle

REACTIONS (1)
  - Intestinal haemorrhage [Unknown]
